FAERS Safety Report 23479108 (Version 1)
Quarter: 2024Q1

REPORT INFORMATION
  Report Type: Other
  Country: GB (occurrence: GB)
  Receive Date: 20240205
  Receipt Date: 20240205
  Transmission Date: 20240410
  Serious: Yes (Other)
  Sender: FDA-Public Use
  Company Number: None

PATIENT

DRUGS (10)
  1. ALLOPURINOL [Suspect]
     Active Substance: ALLOPURINOL
     Indication: Gout
     Dosage: 50 MILLIGRAM, QD
     Route: 065
     Dates: start: 20230705
  2. CANDESARTAN [Concomitant]
     Active Substance: CANDESARTAN
     Indication: Product used for unknown indication
     Dosage: 1 DOSAGE FORM, QD
     Route: 065
     Dates: start: 20230123, end: 20230705
  3. COCODAMOL [Concomitant]
     Active Substance: ACETAMINOPHEN\CODEINE PHOSPHATE
     Indication: Pain
     Dosage: 2 DOSAGE FORM, PRN (AS NECESSARY)
     Route: 065
     Dates: start: 20230511, end: 20230525
  4. DICLOFENAC DIETHYLAMINE [Concomitant]
     Active Substance: DICLOFENAC DIETHYLAMINE
     Indication: Product used for unknown indication
     Dosage: 1 DOSAGE FORM, TID APPLY AS DIRECTED
     Route: 061
     Dates: start: 20230724, end: 20230803
  5. POTASSIUM BICARBONATE\SODIUM ALGINATE [Concomitant]
     Active Substance: POTASSIUM BICARBONATE\SODIUM ALGINATE
     Indication: Product used for unknown indication
     Dosage: 1 DOSAGE FORM, BID WITH WATER - PRN BUT NOT WITHIN...
     Route: 065
     Dates: start: 20230315
  6. HYALURONATE SODIUM [Concomitant]
     Active Substance: HYALURONATE SODIUM
     Indication: Product used for unknown indication
     Dosage: APPLY UP TO 6 TIMES A DAY TO KEEP EYES LUBRICATED
     Route: 065
     Dates: start: 20230116
  7. LANSOPRAZOLE [Concomitant]
     Active Substance: LANSOPRAZOLE
     Indication: Product used for unknown indication
     Dosage: 1 DOSAGE FORM, QD EACH MORNING TO PROTECT YOUR ST...
     Route: 065
     Dates: start: 20230525, end: 20230608
  8. LOSARTAN [Concomitant]
     Active Substance: LOSARTAN
     Indication: Product used for unknown indication
     Dosage: 1 DOSAGE FORM, QD ***THIS REPLACES YOUR CANDESARTA...
     Route: 065
     Dates: start: 20230705
  9. CHLORHEXIDINE HYDROCHLORIDE\NEOMYCIN SULFATE [Concomitant]
     Active Substance: CHLORHEXIDINE HYDROCHLORIDE\NEOMYCIN SULFATE
     Indication: Product used for unknown indication
     Dosage: UNK
     Route: 065
     Dates: start: 20230728
  10. PREDNISOLONE [Concomitant]
     Active Substance: PREDNISOLONE
     Indication: Product used for unknown indication
     Dosage: 4 DOSAGE FORM, QD
     Route: 065
     Dates: start: 20230525, end: 20230530

REACTIONS (2)
  - Delirium [Recovered/Resolved]
  - Epistaxis [Unknown]
